FAERS Safety Report 16386659 (Version 1)
Quarter: 2019Q2

REPORT INFORMATION
  Report Type: Other
  Country: MX (occurrence: MX)
  Receive Date: 20190604
  Receipt Date: 20190604
  Transmission Date: 20190711
  Serious: Yes (Hospitalization, Other)
  Sender: FDA-Public Use
  Company Number: MX-DEXPHARM-20190376

PATIENT
  Age: 21 Year
  Sex: Female
  Weight: 47.5 kg

DRUGS (10)
  1. VITAMIN D [Suspect]
     Active Substance: VITAMIN D NOS
  2. LEVETIRACETAM. [Suspect]
     Active Substance: LEVETIRACETAM
     Indication: SEIZURE
  3. PHENOBARBITAL. [Suspect]
     Active Substance: PHENOBARBITAL
  4. AZATHIOPRINE. [Suspect]
     Active Substance: AZATHIOPRINE
  5. HYDROXYCHLOROQUINE [Suspect]
     Active Substance: HYDROXYCHLOROQUINE
  6. WARFARIN [Suspect]
     Active Substance: WARFARIN
  7. PREDNISONE. [Suspect]
     Active Substance: PREDNISONE
  8. CALCIUM [Suspect]
     Active Substance: CALCIUM
  9. LAMOTRIGINE. [Suspect]
     Active Substance: LAMOTRIGINE
     Indication: SEIZURE
  10. MAGNESIUM VALPROATE [Suspect]
     Active Substance: VALPROATE MAGNESIUM

REACTIONS (14)
  - Antiphospholipid syndrome [Unknown]
  - Behaviour disorder [Recovering/Resolving]
  - Deep vein thrombosis [Unknown]
  - Impulsive behaviour [Recovered/Resolved]
  - Insomnia [Recovering/Resolving]
  - Drug ineffective [Unknown]
  - Suicidal ideation [Recovering/Resolving]
  - Suicide attempt [Recovering/Resolving]
  - Abulia [Recovering/Resolving]
  - Anhedonia [Recovering/Resolving]
  - Irritability [Recovered/Resolved]
  - Depressed mood [Recovering/Resolving]
  - Dyke-Davidoff-Masson syndrome [Unknown]
  - Gastrointestinal haemorrhage [Unknown]
